FAERS Safety Report 25714440 (Version 2)
Quarter: 2025Q4

REPORT INFORMATION
  Report Type: Report from Study
  Country: EU (occurrence: EU)
  Receive Date: 20250822
  Receipt Date: 20251014
  Transmission Date: 20260118
  Serious: Yes (Hospitalization, Other)
  Sender: AMGEN
  Company Number: EU-BEH-2025215895

PATIENT
  Age: 38 Year
  Sex: Male
  Weight: 83 kg

DRUGS (16)
  1. AVACOPAN [Suspect]
     Active Substance: AVACOPAN
     Indication: Anti-neutrophil cytoplasmic antibody positive vasculitis
     Dosage: 30 MG, TID
     Route: 048
     Dates: start: 20240516
  2. PREDNISOLONE [Concomitant]
     Active Substance: PREDNISOLONE
     Indication: Anti-neutrophil cytoplasmic antibody positive vasculitis
     Dosage: 80 MG, QD
     Route: 048
     Dates: start: 20240428, end: 20240503
  3. PREDNISOLONE [Concomitant]
     Active Substance: PREDNISOLONE
     Dosage: 60 MG, QD
     Route: 048
     Dates: start: 20240504, end: 20240508
  4. PREDNISOLONE [Concomitant]
     Active Substance: PREDNISOLONE
     Dosage: 40 MG, QD
     Route: 048
     Dates: start: 20240509, end: 20240515
  5. PREDNISOLONE [Concomitant]
     Active Substance: PREDNISOLONE
     Dosage: 20 MG, QD
     Route: 048
     Dates: start: 20240516, end: 20240522
  6. PREDNISOLONE [Concomitant]
     Active Substance: PREDNISOLONE
     Dosage: 10 MG, QD
     Route: 048
     Dates: start: 20240523, end: 20240525
  7. PREDNISOLONE [Concomitant]
     Active Substance: PREDNISOLONE
     Dosage: 250 MG, QD
     Route: 048
     Dates: start: 20241225, end: 20241227
  8. CYCLOPHOSPHAMIDE [Concomitant]
     Active Substance: CYCLOPHOSPHAMIDE
     Indication: Anti-neutrophil cytoplasmic antibody positive vasculitis
     Dosage: 600 MG, TOT (SINGLE IV INFUSION)
     Route: 040
     Dates: start: 20240428, end: 20240428
  9. CYCLOPHOSPHAMIDE [Concomitant]
     Active Substance: CYCLOPHOSPHAMIDE
     Dosage: 600 MG, TOT (SINGLE IV INFUSION)
     Route: 040
     Dates: start: 20240512, end: 20240512
  10. CYCLOPHOSPHAMIDE [Concomitant]
     Active Substance: CYCLOPHOSPHAMIDE
     Dosage: 600 MG, TOT (SINGLE IV INFUSION)
     Route: 040
     Dates: start: 20240526, end: 20240526
  11. CYCLOPHOSPHAMIDE [Concomitant]
     Active Substance: CYCLOPHOSPHAMIDE
     Dosage: 1100 MG, TOT (SINGLE IV INFUSION)
     Route: 040
     Dates: start: 20240618, end: 20240618
  12. METHYLPREDNISOLONE [Concomitant]
     Active Substance: METHYLPREDNISOLONE
     Indication: Anti-neutrophil cytoplasmic antibody positive vasculitis
     Dosage: 1000 MG, QD
     Route: 048
     Dates: start: 20240425, end: 20240427
  13. RITUXIMAB [Concomitant]
     Active Substance: RITUXIMAB
     Indication: Anti-neutrophil cytoplasmic antibody positive vasculitis
     Dosage: 750 MG, TOT (SINGLE IV INFUSION)
     Route: 040
     Dates: start: 20241228, end: 20241228
  14. RITUXIMAB [Concomitant]
     Active Substance: RITUXIMAB
     Dosage: 750 MG, TOT (SINGLE IV INFUSION)
     Route: 040
     Dates: start: 20250103, end: 20250103
  15. RITUXIMAB [Concomitant]
     Active Substance: RITUXIMAB
     Dosage: 750 MG, TOT (SINGLE IV INFUSION)
     Route: 040
     Dates: start: 20250110, end: 20250110
  16. RITUXIMAB [Concomitant]
     Active Substance: RITUXIMAB
     Dosage: 750 MG, TOT (SINGLE IV INFUSION)
     Route: 040
     Dates: start: 20250117, end: 20250117

REACTIONS (3)
  - Vasculitis [Recovered/Resolved]
  - Hypothyroidism [Not Recovered/Not Resolved]
  - Leukocytosis [Recovered/Resolved]

NARRATIVE: CASE EVENT DATE: 20241225
